FAERS Safety Report 18516989 (Version 1)
Quarter: 2020Q4

REPORT INFORMATION
  Report Type: Spontaneous
  Country: CH (occurrence: CH)
  Receive Date: 20201118
  Receipt Date: 20201118
  Transmission Date: 20210114
  Serious: Yes (Other)
  Sender: FDA-Public Use
  Company Number: NVSC2020CH302715

PATIENT
  Age: 57 Year
  Sex: Female

DRUGS (2)
  1. TRAMETINIB [Suspect]
     Active Substance: TRAMETINIB
     Indication: UVEAL MELANOMA
     Dosage: 2 MG, QD
     Route: 065
     Dates: start: 201805
  2. TRAMETINIB [Suspect]
     Active Substance: TRAMETINIB
     Dosage: 1 MG, QD
     Route: 065

REACTIONS (4)
  - Malignant neoplasm progression [Unknown]
  - Product use in unapproved indication [Unknown]
  - Mucosal inflammation [Unknown]
  - Uveal melanoma [Unknown]

NARRATIVE: CASE EVENT DATE: 201808
